FAERS Safety Report 5223174-1 (Version None)
Quarter: 2007Q1

REPORT INFORMATION
  Report Type: 
  Country: None (occurrence: None)
  Receive Date: 20070129
  Receipt Date: 20070117
  Transmission Date: 20070707
  Serious: Yes (Life-Threatening)
  Sender: FDA-Public Use
  Company Number: SA-PFIZER INC-2007006605

PATIENT
  Age: 50 Year
  Sex: Male

DRUGS (3)
  1. CETIRIZINE HCL [Suspect]
     Indication: SNEEZING
     Dosage: DAILY DOSE:10MG
     Route: 048
  2. CETIRIZINE HCL [Suspect]
     Indication: COUGH
  3. ITRACONAZOLE [Suspect]
     Dosage: DAILY DOSE:100MG
     Route: 048

REACTIONS (1)
  - VENTRICULAR TACHYCARDIA [None]
